FAERS Safety Report 5222780-8 (Version None)
Quarter: 2007Q1

REPORT INFORMATION
  Report Type: 
  Country: None (occurrence: None)
  Receive Date: 20070129
  Receipt Date: 20070126
  Transmission Date: 20070707
  Serious: Yes (Other)
  Sender: FDA-Public Use
  Company Number: US-GLAXOSMITHKLINE-A0632601A

PATIENT
  Age: 74 Year
  Sex: Male

DRUGS (2)
  1. ADVAIR DISKUS 100/50 [Suspect]
     Indication: COUGH
     Dosage: 1PUFF TWICE PER DAY
     Route: 055
     Dates: start: 20050801, end: 20060901
  2. MULTIPLE MEDICATIONS [Concomitant]

REACTIONS (11)
  - ANAEMIA [None]
  - COELIAC DISEASE [None]
  - DYSPHAGIA [None]
  - GASTROOESOPHAGEAL REFLUX DISEASE [None]
  - INCORRECT ROUTE OF DRUG ADMINISTRATION [None]
  - MEDICATION ERROR [None]
  - OESOPHAGEAL CANDIDIASIS [None]
  - PROSTATE CANCER [None]
  - SERUM FERRITIN DECREASED [None]
  - TRANSFERRIN SATURATION DECREASED [None]
  - WEIGHT DECREASED [None]
